APPROVED DRUG PRODUCT: ALLI
Active Ingredient: ORLISTAT
Strength: 60MG
Dosage Form/Route: CAPSULE;ORAL
Application: N021887 | Product #001
Applicant: HALEON US HOLDINGS LLC
Approved: Feb 7, 2007 | RLD: Yes | RS: Yes | Type: OTC